FAERS Safety Report 4524230-3 (Version None)
Quarter: 2004Q4

REPORT INFORMATION
  Report Type: 
  Country: None (occurrence: None)
  Receive Date: 20041119
  Receipt Date: 20040909
  Transmission Date: 20050328
  Serious: No
  Sender: FDA-Public Use
  Company Number: PHEH2004US09694

PATIENT
  Age: 54 Year
  Sex: Female
  Weight: 46.7 kg

DRUGS (4)
  1. ZELNORM [Suspect]
     Indication: CONSTIPATION
     Dosage: 6 MG, BID, ORAL
     Route: 048
     Dates: start: 20040501
  2. ESTRACE [Concomitant]
  3. PROVERA [Concomitant]
  4. ATENOLOL [Concomitant]

REACTIONS (2)
  - FATIGUE [None]
  - WEIGHT INCREASED [None]
